FAERS Safety Report 5614004-4 (Version None)
Quarter: 2008Q1

REPORT INFORMATION
  Report Type: 
  Country: None (occurrence: None)
  Receive Date: 20080205
  Receipt Date: 20080129
  Transmission Date: 20080703
  Serious: Yes (Other)
  Sender: FDA-Public Use
  Company Number: JP-BRISTOL-MYERS SQUIBB COMPANY-14064885

PATIENT
  Age: 85 Year
  Sex: Male

DRUGS (6)
  1. ABILIFY [Suspect]
     Dosage: 04OCT07-17OCT07:3MG QD, THERAPY DURATION:14 DAYS,INCREASED 3MG BID,18OCT07-9JAN2008,DURATION:94DAYS
     Route: 048
     Dates: start: 20071004, end: 20080119
  2. NIVADIL [Concomitant]
     Dosage: NIVADIL TABLET
  3. BUFFERIN TABS [Concomitant]
     Dosage: BUFFERIN 81MG TABLET
  4. WARFARIN SODIUM [Concomitant]
     Dosage: TABLET
  5. NITRAZEPAM [Concomitant]
     Dosage: TABLET
  6. MYSLEE [Concomitant]
     Dosage: TABLET

REACTIONS (1)
  - INTERNATIONAL NORMALISED RATIO INCREASED [None]
